FAERS Safety Report 7771356-7 (Version None)
Quarter: 2011Q3

REPORT INFORMATION
  Report Type: 
  Country: None (occurrence: None)
  Receive Date: 20110922
  Receipt Date: 20110912
  Transmission Date: 20111222
  Serious: Yes (Other)
  Sender: FDA-Public Use
  Company Number: US-JNJFOC-20110800226

PATIENT
  Sex: Female
  Weight: 43.55 kg

DRUGS (2)
  1. REMICADE [Suspect]
     Indication: CROHN'S DISEASE
     Route: 042
     Dates: start: 20110101
  2. REMICADE [Suspect]
     Route: 042
     Dates: start: 20110524

REACTIONS (2)
  - LUPUS-LIKE SYNDROME [None]
  - TYPE IV HYPERSENSITIVITY REACTION [None]
